FAERS Safety Report 7037112-2 (Version None)
Quarter: 2010Q4

REPORT INFORMATION
  Report Type: 
  Country: None (occurrence: None)
  Receive Date: 20101011
  Receipt Date: 20101006
  Transmission Date: 20110411
  Serious: Yes (Death, Hospitalization, Other)
  Sender: FDA-Public Use
  Company Number: PHHY2010US66874

PATIENT
  Age: 52 Year
  Sex: Male

DRUGS (33)
  1. SANDIMMUNE [Suspect]
     Indication: LUNG TRANSPLANT
     Route: 048
  2. SANDIMMUNE [Suspect]
     Indication: OBLITERATIVE BRONCHIOLITIS
  3. CYCLOSPORINE [Suspect]
     Indication: LUNG TRANSPLANT
  4. CYCLOSPORINE [Suspect]
     Indication: OBLITERATIVE BRONCHIOLITIS
  5. VALGANCICLOVIR HCL [Concomitant]
  6. CYTOGAM [Concomitant]
  7. TIGECYCLINE [Concomitant]
     Dosage: UNK
  8. XOPENEX [Concomitant]
  9. LIDOCAINE [Concomitant]
  10. PREDNISONE [Concomitant]
     Dosage: UNK
  11. MYCOPHENOLATE MOFETIL [Concomitant]
     Dosage: UNK
  12. TRIMETHOPRIM [Concomitant]
  13. SULFAMETHOXAZOLE [Concomitant]
  14. NYSTATIN [Concomitant]
  15. METOPROLOL TARTRATE [Concomitant]
  16. LISINOPRIL [Concomitant]
  17. NOVOLOG [Concomitant]
  18. PRAVASTATIN [Concomitant]
  19. ESOMEPRAZOLE [Concomitant]
  20. CLONAZEPAM [Concomitant]
  21. CITRICAL [Concomitant]
  22. VITAMIN D [Concomitant]
     Dosage: UNK
  23. ALENDRONATE SODIUM [Concomitant]
  24. ASPIRIN [Concomitant]
  25. CENTRUM SILVER [Concomitant]
  26. MIRALAX [Concomitant]
  27. AZITHROMYCIN [Concomitant]
  28. FLUTICASONE PROPIONATE [Concomitant]
  29. SALMETEROL [Concomitant]
  30. NORCO [Concomitant]
  31. COLACE [Concomitant]
  32. SENOKOT [Concomitant]
  33. METHYLPREDNISOLONE [Concomitant]

REACTIONS (16)
  - ACUTE RESPIRATORY DISTRESS SYNDROME [None]
  - BREATH SOUNDS ABNORMAL [None]
  - CHILLS [None]
  - COUGH [None]
  - DYSPNOEA [None]
  - EAR PAIN [None]
  - HEADACHE [None]
  - HYPOXIA [None]
  - LUNG TRANSPLANT REJECTION [None]
  - MECHANICAL VENTILATION [None]
  - NAUSEA [None]
  - PNEUMONIA STAPHYLOCOCCAL [None]
  - PYREXIA [None]
  - SEPTIC SHOCK [None]
  - TRACHEAL STENOSIS [None]
  - VOMITING [None]
